FAERS Safety Report 18570541 (Version 1)
Quarter: 2020Q4

REPORT INFORMATION
  Report Type: Spontaneous
  Country: US (occurrence: US)
  Receive Date: 20201202
  Receipt Date: 20201202
  Transmission Date: 20210114
  Serious: Yes (Hospitalization)
  Sender: FDA-Public Use
  Company Number: US-ASTRAZENECA-2020SF57095

PATIENT
  Age: 77 Year
  Sex: Female

DRUGS (3)
  1. DACOMITINIB [Suspect]
     Active Substance: DACOMITINIB
     Indication: LUNG CARCINOMA CELL TYPE UNSPECIFIED STAGE IV
     Route: 048
     Dates: end: 20200619
  2. DACOMITINIB [Suspect]
     Active Substance: DACOMITINIB
     Indication: LUNG CARCINOMA CELL TYPE UNSPECIFIED STAGE IV
     Route: 048
     Dates: start: 20200529, end: 20200612
  3. TAGRISSO [Suspect]
     Active Substance: OSIMERTINIB
     Indication: LUNG CARCINOMA CELL TYPE UNSPECIFIED STAGE IV
     Route: 048
     Dates: start: 20200529, end: 20200619

REACTIONS (6)
  - Diarrhoea [Recovered/Resolved]
  - Gastrointestinal toxicity [Unknown]
  - Chills [Unknown]
  - Skin toxicity [Unknown]
  - Pyrexia [Recovered/Resolved]
  - SARS-CoV-2 test negative [Unknown]

NARRATIVE: CASE EVENT DATE: 20200620
